FAERS Safety Report 9503367 (Version 1)
Quarter: 2013Q3

REPORT INFORMATION
  Report Type: Spontaneous
  Country: US (occurrence: US)
  Receive Date: 20130906
  Receipt Date: 20130906
  Transmission Date: 20140515
  Serious: No
  Sender: FDA-Public Use
  Company Number: US-009507513-1308USA013466

PATIENT
  Sex: 0

DRUGS (3)
  1. SINEMET [Suspect]
     Dosage: 0.5 DF 12.5/50 MG
     Route: 048
     Dates: start: 2013
  2. AZILECT [Concomitant]
     Dosage: 1 MG, UNK
  3. NEUPRO [Concomitant]
     Dosage: 8 MG, UNK

REACTIONS (3)
  - Breath odour [Unknown]
  - Drug ineffective [Unknown]
  - Dysgeusia [Unknown]
